FAERS Safety Report 4505283-5 (Version None)
Quarter: 2004Q4

REPORT INFORMATION
  Report Type: 
  Country: None (occurrence: None)
  Receive Date: 20041018
  Receipt Date: 20031218
  Transmission Date: 20050328
  Serious: Yes (Hospitalization)
  Sender: FDA-Public Use
  Company Number: PHEH2002US06400

PATIENT
  Age: 78 Year
  Sex: Female
  Weight: 58 kg

DRUGS (8)
  1. MIACALCIN [Suspect]
     Indication: BACK PAIN
     Dosage: 1 SPRAY DAILY, INTRANASAL
     Route: 045
     Dates: start: 20020621, end: 20020713
  2. PREMARIN [Concomitant]
  3. PRINIVIL [Concomitant]
  4. CALCIUM [Concomitant]
  5. VITAMIN C [Concomitant]
  6. GLUCOSAMINE (GLUCOSAMINE) [Concomitant]
  7. ARTHROTEC [Concomitant]
  8. FOSAMAX [Concomitant]

REACTIONS (6)
  - DYSPNOEA [None]
  - HYPERSENSITIVITY [None]
  - OROPHARYNGEAL SWELLING [None]
  - SWOLLEN TONGUE [None]
  - TREMOR [None]
  - URTICARIA [None]
